FAERS Safety Report 8552322-0 (Version None)
Quarter: 2012Q3

REPORT INFORMATION
  Report Type: 
  Country: None (occurrence: None)
  Receive Date: 20120718
  Receipt Date: 20120710
  Transmission Date: 20120928
  Serious: Yes (Death)
  Sender: FDA-Public Use
  Company Number: US-2012-10893

PATIENT

DRUGS (6)
  1. BUSULFEX [Suspect]
     Indication: BONE MARROW CONDITIONING REGIMEN
  2. CYCLOPHOSPHAMIDE [Suspect]
     Indication: BONE MARROW CONDITIONING REGIMEN
  3. CYCLOSPORINE [Concomitant]
  4. METHOTREXATE SODIUM [Concomitant]
  5. PREDNISONE TAB [Concomitant]
  6. TOTAL BODY IRRADIATION () [Suspect]
     Indication: BONE MARROW CONDITIONING REGIMEN

REACTIONS (1)
  - CARDIAC FAILURE [None]
